FAERS Safety Report 4357553-1 (Version None)
Quarter: 2004Q2

REPORT INFORMATION
  Report Type: 
  Country: None (occurrence: None)
  Receive Date: 20040510
  Receipt Date: 20040506
  Transmission Date: 20050107
  Serious: Yes (Death, Other)
  Sender: FDA-Public Use
  Company Number: 200409036

PATIENT
  Age: 90 Year
  Sex: Female

DRUGS (8)
  1. STREPTASE [Suspect]
     Indication: MYOCARDIAL INFARCTION
     Dosage: 1.5 MIU DAILY IV
     Route: 042
     Dates: start: 20040406, end: 20040406
  2. ASPIRIN [Suspect]
     Indication: MYOCARDIAL INFARCTION
     Route: 042
     Dates: start: 20040406, end: 20040406
  3. ENOXAPARIN SODIUM [Suspect]
     Indication: MYOCARDIAL INFARCTION
     Dosage: IV
     Route: 042
     Dates: start: 20040406, end: 20040407
  4. CORDARONE [Concomitant]
  5. MORPHINE [Concomitant]
  6. FUROSEMIDE [Concomitant]
  7. LOSEC [Concomitant]
  8. KALIPOZ [Concomitant]

REACTIONS (5)
  - CARDIO-RESPIRATORY ARREST [None]
  - CARDIOGENIC SHOCK [None]
  - HAEMOPTYSIS [None]
  - RESPIRATORY TRACT HAEMORRHAGE [None]
  - VENTRICULAR FIBRILLATION [None]
